FAERS Safety Report 4303405-2 (Version None)
Quarter: 2004Q1

REPORT INFORMATION
  Report Type: 
  Country: None (occurrence: None)
  Receive Date: 20040224
  Receipt Date: 20030417
  Transmission Date: 20041129
  Serious: Yes (Hospitalization, Other)
  Sender: FDA-Public Use
  Company Number: WAES 0304GBR00148

PATIENT
  Age: 85 Year
  Sex: Female

DRUGS (8)
  1. ASPIRIN [Concomitant]
     Indication: PROPHYLAXIS
  2. ATENOLOL [Concomitant]
     Indication: HYPERTENSION
  3. FUROSEMIDE [Concomitant]
     Indication: POLYURIA
  4. NICORANDIL [Concomitant]
     Indication: ANGINA PECTORIS
  5. OLANZAPINE [Concomitant]
     Indication: PSYCHOTIC DISORDER
  6. QUININE SULFATE [Concomitant]
     Indication: NIGHT CRAMPS
  7. SERTRALINE HYDROCHLORIDE [Concomitant]
     Indication: DEPRESSION
  8. ZOCOR [Suspect]
     Indication: BLOOD CHOLESTEROL INCREASED
     Route: 048
     Dates: start: 20021201, end: 20030401

REACTIONS (3)
  - BLOOD POTASSIUM DECREASED [None]
  - BLOOD SODIUM INCREASED [None]
  - COLITIS [None]
